FAERS Safety Report 5257104-3 (Version None)
Quarter: 2007Q1

REPORT INFORMATION
  Report Type: 
  Country: None (occurrence: None)
  Receive Date: 20070302
  Receipt Date: 20070216
  Transmission Date: 20070707
  Serious: Yes (Hospitalization)
  Sender: FDA-Public Use
  Company Number: T200700169

PATIENT
  Age: 87 Year
  Sex: Female

DRUGS (11)
  1. OPTIRAY 300 [Suspect]
     Indication: COMPUTERISED TOMOGRAM THORAX
     Dosage: 95 ML, SINGLE, INTRAVENOUS
     Route: 042
     Dates: start: 20070205, end: 20070205
  2. SYNTHROID [Concomitant]
  3. ALDACTONE [Concomitant]
  4. LASIX [Concomitant]
  5. ASPIRIN /00002701/ (AETYLSALICYLIC ACID) [Concomitant]
  6. VERAPAMIL [Concomitant]
  7. OMEPRAZOLE [Concomitant]
  8. CELEBREX [Concomitant]
  9. ZELNORM /01470301/ (TEGASEROD) [Concomitant]
  10. K-DUR 10 [Concomitant]
  11. COUMADIN [Concomitant]

REACTIONS (7)
  - AIR EMBOLISM [None]
  - CYANOSIS [None]
  - DRUG ADMINISTRATION ERROR [None]
  - DYSPNOEA [None]
  - HYPOXIA [None]
  - RESPIRATORY FAILURE [None]
  - WRONG TECHNIQUE IN DRUG USAGE PROCESS [None]
